FAERS Safety Report 6218480-8 (Version None)
Quarter: 2009Q2

REPORT INFORMATION
  Report Type: 
  Country: None (occurrence: None)
  Receive Date: 20090608
  Receipt Date: 20090602
  Transmission Date: 20091009
  Serious: Yes (Other)
  Sender: FDA-Public Use
  Company Number: B0575629A

PATIENT
  Sex: Male

DRUGS (7)
  1. ARIXTRA [Suspect]
     Dosage: 2.5MG PER DAY
     Route: 058
     Dates: start: 20090305
  2. UNFRACTIONATED HEPARIN [Concomitant]
     Indication: PERCUTANEOUS CORONARY INTERVENTION
     Dosage: 8000IU AS REQUIRED
     Route: 042
     Dates: start: 20090306
  3. TIATRAL [Concomitant]
     Dosage: 100MG PER DAY
     Route: 048
  4. PLAVIX [Concomitant]
     Dosage: 75MG PER DAY
     Route: 048
  5. UNKNOWN DRUG [Concomitant]
     Dosage: 10MG PER DAY
     Route: 048
  6. CORDARONE [Concomitant]
     Dosage: 200MG PER DAY
     Route: 048
  7. COZAAR [Concomitant]
     Dosage: 50MG PER DAY
     Route: 048

REACTIONS (1)
  - CATHETER THROMBOSIS [None]
